FAERS Safety Report 5601193-0 (Version None)
Quarter: 2008Q1

REPORT INFORMATION
  Report Type: 
  Country: None (occurrence: None)
  Receive Date: 20080122
  Receipt Date: 20080122
  Transmission Date: 20080703
  Serious: No
  Sender: FDA-Public Use
  Company Number: None

PATIENT
  Age: 36 Year
  Sex: Female
  Weight: 113.3993 kg

DRUGS (1)
  1. PROAIR HFA [Suspect]
     Indication: ASTHMA
     Dosage: METERED DOSE AS NEEDED INHAL
     Route: 055
     Dates: start: 20080115, end: 20080121

REACTIONS (6)
  - APHTHOUS STOMATITIS [None]
  - CHEILITIS [None]
  - ERYTHEMA [None]
  - GINGIVAL SWELLING [None]
  - GINGIVITIS [None]
  - STOMATITIS [None]
